FAERS Safety Report 6978797-6 (Version None)
Quarter: 2010Q3

REPORT INFORMATION
  Report Type: 
  Country: None (occurrence: None)
  Receive Date: 20100908
  Receipt Date: 20100902
  Transmission Date: 20110219
  Serious: Yes (Other)
  Sender: FDA-Public Use
  Company Number: 1000016093

PATIENT
  Age: 63 Year
  Sex: Male
  Weight: 118.2 kg

DRUGS (5)
  1. BYSTOLIC [Suspect]
     Dosage: ORAL
     Route: 048
     Dates: start: 20091201
  2. SYNTHROID [Suspect]
     Indication: HYPOTHYROIDISM
     Dosage: (175 MCG)
     Dates: start: 20100701
  3. AMLODIPINE BESYLATE [Concomitant]
  4. HYDROCHLOROTHIAZIDE [Concomitant]
  5. NITROFURANTOIN [Concomitant]

REACTIONS (5)
  - BLOOD POTASSIUM DECREASED [None]
  - CHEST PAIN [None]
  - DYSPNOEA [None]
  - PALPITATIONS [None]
  - VENTRICULAR EXTRASYSTOLES [None]
